FAERS Safety Report 9196797 (Version 1)
Quarter: 2013Q1

REPORT INFORMATION
  Report Type: Spontaneous
  Country: GB (occurrence: GB)
  Receive Date: 20130328
  Receipt Date: 20130328
  Transmission Date: 20140127
  Serious: Yes (Other)
  Sender: FDA-Public Use
  Company Number: GB-MYLANLABS-2013S1006143

PATIENT
  Age: 33 Year
  Sex: Female
  Weight: 71.66 kg

DRUGS (10)
  1. MIRTAZAPINE [Suspect]
     Indication: ANXIETY
     Route: 048
     Dates: start: 20120408, end: 20130421
  2. MIRTAZAPINE [Suspect]
     Indication: DEPRESSION
     Route: 048
     Dates: start: 20120408, end: 20130421
  3. MIRTAZAPINE [Suspect]
     Indication: PANIC ATTACK
     Route: 048
     Dates: start: 20120408, end: 20130421
  4. BUSCOPAN [Concomitant]
     Indication: PRODUCT USED FOR UNKNOWN INDICATION
  5. CLONAZEPAM [Concomitant]
     Indication: PRODUCT USED FOR UNKNOWN INDICATION
  6. CODEINE [Concomitant]
     Indication: PRODUCT USED FOR UNKNOWN INDICATION
  7. MEFENAMIC ACID [Concomitant]
     Indication: PRODUCT USED FOR UNKNOWN INDICATION
  8. PROMETHAZINE HYDROCHLORIDE [Concomitant]
     Indication: PRODUCT USED FOR UNKNOWN INDICATION
  9. SEROQUEL [Concomitant]
     Indication: PRODUCT USED FOR UNKNOWN INDICATION
  10. ZOPICLONE [Concomitant]
     Indication: PRODUCT USED FOR UNKNOWN INDICATION

REACTIONS (4)
  - Bipolar I disorder [Recovering/Resolving]
  - Mood swings [Recovering/Resolving]
  - Suicidal ideation [Recovering/Resolving]
  - Withdrawal syndrome [Unknown]
